FAERS Safety Report 6739858-X (Version None)
Quarter: 2010Q2

REPORT INFORMATION
  Report Type: 
  Country: None (occurrence: None)
  Receive Date: 20100525
  Receipt Date: 20100517
  Transmission Date: 20101027
  Serious: No
  Sender: FDA-Public Use
  Company Number: PHHY2009DE55665

PATIENT
  Sex: Female

DRUGS (2)
  1. ESTRADERM [Suspect]
     Dosage: 50 UG/DAY
     Route: 062
     Dates: start: 20020101
  2. ESTRADERM [Suspect]
     Dosage: 50 UG/DAY
     Route: 062
     Dates: start: 20090101

REACTIONS (1)
  - VEIN PAIN [None]
